FAERS Safety Report 13352322 (Version 1)
Quarter: 2017Q1

REPORT INFORMATION
  Report Type: Spontaneous
  Country: US (occurrence: US)
  Receive Date: 20170320
  Receipt Date: 20170320
  Transmission Date: 20170429
  Serious: No
  Sender: FDA-Public Use
  Company Number: US-SA-2017SA003151

PATIENT
  Age: 85 Year
  Sex: Female

DRUGS (1)
  1. NASACORT ALLERGY 24HR [Suspect]
     Active Substance: TRIAMCINOLONE ACETONIDE
     Indication: HYPERSENSITIVITY
     Dosage: 1 SQUIRT IN EACH NOSTRIL QAM AND QPM; DOSAGE: 0.055 MG?FORMULATION: NASAL SPRAY
     Route: 045

REACTIONS (2)
  - Unevaluable event [Unknown]
  - Overdose [Unknown]
